FAERS Safety Report 18327389 (Version 1)
Quarter: 2020Q3

REPORT INFORMATION
  Report Type: Spontaneous
  Country: US (occurrence: US)
  Receive Date: 20200930
  Receipt Date: 20200930
  Transmission Date: 20201103
  Serious: No
  Sender: FDA-Public Use
  Company Number: US-BAUSCH-BL-2020-026973

PATIENT
  Age: 7 Decade
  Sex: Female

DRUGS (2)
  1. ELIDEL [Suspect]
     Active Substance: PIMECROLIMUS
     Indication: RASH
     Dosage: ON FACE
     Route: 061
     Dates: start: 2014
  2. ELIDEL [Suspect]
     Active Substance: PIMECROLIMUS
     Route: 061

REACTIONS (5)
  - Inappropriate schedule of product administration [Unknown]
  - Rash [Recovered/Resolved]
  - Condition aggravated [Recovered/Resolved]
  - Aphthous ulcer [Recovered/Resolved]
  - Oral candidiasis [Recovered/Resolved]

NARRATIVE: CASE EVENT DATE: 2014
